FAERS Safety Report 12599179 (Version 1)
Quarter: 2016Q3

REPORT INFORMATION
  Report Type: Spontaneous
  Country: US (occurrence: None)
  Receive Date: 20160726
  Receipt Date: 20160726
  Transmission Date: 20161109
  Serious: Yes (Other)
  Sender: FDA-Public Use
  Company Number: None

PATIENT

DRUGS (1)
  1. DOCUSATE SODIUM, 50MG/5 ML [Suspect]
     Active Substance: DOCUSATE SODIUM
     Dates: start: 20160614, end: 20160718

REACTIONS (3)
  - Product quality issue [None]
  - Product contamination microbial [None]
  - Burkholderia test positive [None]

NARRATIVE: CASE EVENT DATE: 20160722
